FAERS Safety Report 6345415-X (Version None)
Quarter: 2009Q3

REPORT INFORMATION
  Report Type: 
  Country: None (occurrence: None)
  Receive Date: 20090909
  Receipt Date: 20090828
  Transmission Date: 20100115
  Serious: Yes (Hospitalization)
  Sender: FDA-Public Use
  Company Number: US-MYLANLABS-2009S1015306

PATIENT
  Age: 59 Year
  Sex: Male
  Weight: 86.18 kg

DRUGS (5)
  1. PHENYTOIN SODIUM [Suspect]
     Indication: CONVULSION
     Route: 048
     Dates: start: 20050615, end: 20050618
  2. DILANTIN [Suspect]
     Indication: CONVULSION
     Route: 048
  3. PHENOBARBITAL [Suspect]
     Indication: CONVULSION
     Route: 048
  4. VALIUM [Concomitant]
     Dates: start: 20090615, end: 20050623
  5. MORPHINE [Concomitant]
     Dates: start: 20090615, end: 20050625

REACTIONS (5)
  - COLLAPSE OF LUNG [None]
  - CONSTIPATION [None]
  - INCORRECT DOSE ADMINISTERED [None]
  - NEUROPATHY PERIPHERAL [None]
  - OVERDOSE [None]
